FAERS Safety Report 4750095-0 (Version None)
Quarter: 2005Q3

REPORT INFORMATION
  Report Type: 
  Country: None (occurrence: None)
  Receive Date: 20050822
  Receipt Date: 20050805
  Transmission Date: 20060218
  Serious: Yes (Death, Life-Threatening, Hospitalization)
  Sender: FDA-Public Use
  Company Number: CLOF-10046

PATIENT
  Age: 70 Year
  Sex: Female

DRUGS (10)
  1. CLOFARABINE [Suspect]
     Indication: ACUTE MYELOID LEUKAEMIA
     Dates: start: 20050531, end: 20050604
  2. CLOFARABINE [Suspect]
     Indication: ACUTE MYELOID LEUKAEMIA
     Dosage: 43 MG QD X 5 IV
     Route: 042
     Dates: start: 20050712, end: 20050715
  3. CIPROFLOXACIN [Concomitant]
  4. OMEPRAZOLE [Concomitant]
  5. ACYCLOVIR [Concomitant]
  6. PARACETAMOL [Concomitant]
  7. CHLORPHENIRAMINE MALEATE [Concomitant]
  8. ONDANSETRON [Concomitant]
  9. DEXAMETHASONE [Concomitant]
  10. ITRACONAZOLE [Concomitant]

REACTIONS (11)
  - ACIDOSIS [None]
  - ANAEMIA [None]
  - ATRIAL FIBRILLATION [None]
  - CHEST PAIN [None]
  - ESCHERICHIA INFECTION [None]
  - HAEMODIALYSIS [None]
  - HYPOTENSION [None]
  - NEUTROPENIC SEPSIS [None]
  - RENAL IMPAIRMENT [None]
  - THERAPY NON-RESPONDER [None]
  - WHITE BLOOD CELL COUNT DECREASED [None]
